FAERS Safety Report 8170564-3 (Version None)
Quarter: 2012Q1

REPORT INFORMATION
  Report Type: 
  Country: None (occurrence: None)
  Receive Date: 20120228
  Receipt Date: 20120217
  Transmission Date: 20120608
  Serious: Yes (Other)
  Sender: FDA-Public Use
  Company Number: DE-PFIZER INC-2011271874

PATIENT
  Age: 62 Year
  Sex: Female

DRUGS (2)
  1. MORPHINE SULFATE [Suspect]
     Indication: PAIN
     Dosage: 80 MG, 2X/DAY
     Route: 048
  2. FENTANYL-100 [Suspect]
     Indication: PAIN
     Dosage: 75 MCG, Q1H
     Route: 062

REACTIONS (2)
  - DRUG DEPENDENCE [None]
  - DRUG ABUSE [None]
